FAERS Safety Report 13360144 (Version 2)
Quarter: 2017Q1

REPORT INFORMATION
  Report Type: Spontaneous
  Country: FR (occurrence: FR)
  Receive Date: 20170322
  Receipt Date: 20170330
  Transmission Date: 20170429
  Serious: Yes (Death, Life-Threatening, Hospitalization)
  Sender: FDA-Public Use
  Company Number: FR-PFIZER INC-2017121247

PATIENT
  Age: 1 Day
  Sex: Male
  Weight: 1.51 kg

DRUGS (3)
  1. CYTOTEC [Suspect]
     Active Substance: MISOPROSTOL
     Indication: ABORTION INDUCED
     Dosage: 800 UG, TOTAL
     Route: 064
     Dates: start: 20100915
  2. RIFINAH [Suspect]
     Active Substance: ISONIAZID\RIFAMPIN
     Indication: TUBERCULOSIS
     Dosage: 2 DF, DAILY
     Route: 064
     Dates: end: 20101011
  3. MIFEGYNE [Suspect]
     Active Substance: MIFEPRISTONE
     Indication: ABORTION INDUCED
     Dosage: 600 MG, TOTAL
     Route: 064
     Dates: start: 20100913

REACTIONS (5)
  - Death neonatal [Fatal]
  - Foetal arrhythmia [Unknown]
  - Omphalitis [Not Recovered/Not Resolved]
  - Premature baby [Unknown]
  - Maternal exposure timing unspecified [Fatal]

NARRATIVE: CASE EVENT DATE: 20110211
